FAERS Safety Report 21052804 (Version 1)
Quarter: 2022Q3

REPORT INFORMATION
  Report Type: Spontaneous
  Country: US (occurrence: US)
  Receive Date: 20220707
  Receipt Date: 20220707
  Transmission Date: 20221027
  Serious: No
  Sender: FDA-Public Use
  Company Number: US-BoehringerIngelheim-2022-BI-180462

PATIENT
  Sex: Female

DRUGS (1)
  1. SPIRIVA RESPIMAT [Suspect]
     Active Substance: TIOTROPIUM BROMIDE
     Indication: Product used for unknown indication
     Dates: end: 202206

REACTIONS (5)
  - Ocular hyperaemia [Unknown]
  - Diarrhoea [Unknown]
  - Urinary tract infection [Unknown]
  - Dyspepsia [Unknown]
  - Upper respiratory tract infection [Unknown]
